FAERS Safety Report 19970767 (Version 1)
Quarter: 2021Q4

REPORT INFORMATION
  Report Type: Report from Study
  Country: ES (occurrence: ES)
  Receive Date: 20211019
  Receipt Date: 20211019
  Transmission Date: 20220303
  Serious: Yes (Other)
  Sender: FDA-Public Use
  Company Number: ES-VELOXIS PHARMACEUTICALS-2020VELES-000876

PATIENT
  Age: 73 Year
  Sex: Male
  Weight: 73 kg

DRUGS (38)
  1. MYCOPHENOLATE MOFETIL [Suspect]
     Active Substance: MYCOPHENOLATE MOFETIL
     Indication: Respiratory failure
     Dosage: 2000 MILLIGRAM, QD
     Dates: start: 20190730, end: 20190827
  2. MYCOPHENOLATE MOFETIL [Suspect]
     Active Substance: MYCOPHENOLATE MOFETIL
     Dosage: 1500 MILLIGRAM, QD
     Route: 065
     Dates: start: 20190828, end: 20190911
  3. MYCOPHENOLATE MOFETIL [Suspect]
     Active Substance: MYCOPHENOLATE MOFETIL
     Dosage: 1000 MILLIGRAM, QD
     Route: 065
     Dates: start: 20190912
  4. THYMOGLOBULIN [Suspect]
     Active Substance: LAPINE T-LYMPHOCYTE IMMUNE GLOBULIN
     Indication: Immunosuppression
     Dosage: 75 MILLIGRAM, QD
     Route: 065
     Dates: start: 20190730, end: 20190802
  5. PREDNISONE [Suspect]
     Active Substance: PREDNISONE
     Indication: Immunosuppression
     Dosage: 5 MG
     Route: 065
     Dates: start: 20190730
  6. ENVARSUS XR [Suspect]
     Active Substance: TACROLIMUS
     Indication: Prophylaxis against transplant rejection
     Dosage: 4.75 MILLIGRAM, QD
     Route: 048
     Dates: start: 20190802, end: 20190806
  7. ENVARSUS XR [Suspect]
     Active Substance: TACROLIMUS
     Indication: Immunosuppression
     Dosage: 3 MILLIGRAM, QD
     Route: 048
     Dates: start: 20190928, end: 20191105
  8. ENVARSUS XR [Suspect]
     Active Substance: TACROLIMUS
     Dosage: 4 MILLIGRAM, QD
     Route: 048
     Dates: start: 20190815, end: 20190819
  9. ENVARSUS XR [Suspect]
     Active Substance: TACROLIMUS
     Dosage: 2 MILLIGRAM, QD
     Route: 048
     Dates: start: 20191127, end: 20191205
  10. ENVARSUS XR [Suspect]
     Active Substance: TACROLIMUS
     Dosage: 2.75 MILLIGRAM, QD
     Route: 048
     Dates: start: 20190730
  11. ENVARSUS XR [Suspect]
     Active Substance: TACROLIMUS
     Dosage: 1.75 MILLIGRAM, QD
     Route: 048
     Dates: start: 20191206, end: 20191213
  12. ENVARSUS XR [Suspect]
     Active Substance: TACROLIMUS
     Dosage: 3.5 MILLIGRAM, QD
     Route: 048
     Dates: start: 20190803
  13. ENVARSUS XR [Suspect]
     Active Substance: TACROLIMUS
     Dosage: 3 MILLIGRAM, QD
     Route: 048
     Dates: start: 20190809, end: 20190814
  14. ENVARSUS XR [Suspect]
     Active Substance: TACROLIMUS
     Dosage: 2.75 MILLIGRAM, QD
     Route: 048
     Dates: start: 20191106, end: 20191126
  15. ENVARSUS XR [Suspect]
     Active Substance: TACROLIMUS
     Dosage: 3.5 MILLIGRAM, QD
     Route: 048
     Dates: start: 20190820, end: 20190927
  16. ENVARSUS XR [Suspect]
     Active Substance: TACROLIMUS
     Dosage: 3.5 MILLIGRAM, QD
     Route: 048
     Dates: start: 20190806, end: 20190808
  17. ENVARSUS XR [Suspect]
     Active Substance: TACROLIMUS
     Dosage: 1.5 MILLIGRAM, QD
     Route: 048
     Dates: start: 20191214
  18. ENVARSUS XR [Suspect]
     Active Substance: TACROLIMUS
     Dosage: 1.5 MILLIGRAM, QD
     Route: 048
     Dates: start: 20190730
  19. LEVOFLOXACIN [Concomitant]
     Active Substance: LEVOFLOXACIN
     Indication: Respiratory failure
     Dosage: UNK
     Route: 065
     Dates: start: 20191011, end: 20191017
  20. COTRIMOXAZOLE [Concomitant]
     Active Substance: SULFAMETHOXAZOLE\TRIMETHOPRIM
     Indication: Antibiotic prophylaxis
     Dosage: UNK
     Route: 065
     Dates: start: 20190809, end: 20200204
  21. DARBEPOETIN ALFA [Concomitant]
     Active Substance: DARBEPOETIN ALFA
     Indication: Anaemia
     Dosage: UNK
     Route: 065
     Dates: start: 20190809, end: 20191105
  22. CALCO [Concomitant]
     Indication: Osteoporosis prophylaxis
     Dosage: UNK
     Route: 065
     Dates: start: 20190809
  23. LINAGLIPTIN [Concomitant]
     Active Substance: LINAGLIPTIN
     Indication: Type 2 diabetes mellitus
     Dosage: UNK
     Dates: start: 20190809, end: 20191003
  24. FUROSEMIDE [Concomitant]
     Active Substance: FUROSEMIDE
     Indication: Cardiac failure
     Dosage: 40 MG
     Route: 065
  25. FUROSEMIDE [Concomitant]
     Active Substance: FUROSEMIDE
     Indication: Oedema
     Dosage: UNK
     Route: 065
  26. FUROSEMIDE [Concomitant]
     Active Substance: FUROSEMIDE
     Indication: Hypertension
     Dosage: UNK
     Dates: start: 20191030
  27. NIFEDIPINE [Concomitant]
     Active Substance: NIFEDIPINE
     Indication: Hypertension
     Dosage: 60 MG
     Dates: start: 20190809
  28. ACENOCOUMAROL [Concomitant]
     Active Substance: ACENOCOUMAROL
     Indication: Pulmonary embolism
     Dosage: FOR IN 2-3
     Dates: start: 20191105
  29. VALGANCICLOVIR [Concomitant]
     Active Substance: VALGANCICLOVIR
     Indication: Cytomegalovirus infection reactivation
     Dosage: UNK
     Dates: start: 20200109, end: 20200310
  30. VALGANCICLOVIR [Concomitant]
     Active Substance: VALGANCICLOVIR
     Indication: Antiviral prophylaxis
     Dosage: UNK
     Dates: start: 20190809, end: 20191213
  31. ALPRAZOLAM [Concomitant]
     Active Substance: ALPRAZOLAM
     Indication: Insomnia
     Dosage: UNK
     Dates: start: 20190809
  32. INSULIN GLARGINE [Concomitant]
     Active Substance: INSULIN GLARGINE
     Indication: Type 2 diabetes mellitus
     Dosage: UNK
     Dates: start: 20190809, end: 20190911
  33. OMEPRAZOLE [Concomitant]
     Active Substance: OMEPRAZOLE
     Indication: Multiple drug therapy
     Dosage: UNK
     Dates: start: 20190809
  34. BISOPROLOL [Concomitant]
     Active Substance: BISOPROLOL
     Indication: Hypertension
     Dosage: 2.5 MG
     Dates: start: 20190809
  35. LEVEMIR [Concomitant]
     Active Substance: INSULIN DETEMIR
     Indication: Diabetes mellitus
     Dosage: UNK
     Dates: start: 20190829
  36. ATORVASTATIN [Concomitant]
     Active Substance: ATORVASTATIN
     Indication: Dyslipidaemia
     Dosage: 20 MG
     Dates: start: 20191105
  37. DOXAZOSIN [Concomitant]
     Active Substance: DOXAZOSIN MESYLATE
     Indication: Hypertension
     Dosage: 8 MG
     Dates: start: 20191105
  38. HEPARIN SODIUM [Concomitant]
     Active Substance: HEPARIN SODIUM
     Indication: Pulmonary embolism
     Dosage: UNK
     Dates: start: 20190926, end: 20191106

REACTIONS (3)
  - Fluid retention [Recovered/Resolved]
  - Tremor [Recovering/Resolving]
  - Cytomegalovirus infection reactivation [Recovered/Resolved]

NARRATIVE: CASE EVENT DATE: 20190809
